FAERS Safety Report 14187494 (Version 1)
Quarter: 2017Q4

REPORT INFORMATION
  Report Type: Report from Study
  Country: US (occurrence: US)
  Receive Date: 20171114
  Receipt Date: 20171114
  Transmission Date: 20180321
  Serious: Yes (Other)
  Sender: FDA-Public Use
  Company Number: US-BAYER-2017-214714

PATIENT
  Age: 56 Year
  Sex: Male

DRUGS (2)
  1. STIVARGA [Suspect]
     Active Substance: REGORAFENIB
     Indication: COLORECTAL CANCER METASTATIC
     Dosage: DAILY DOSE 80 MG
     Dates: start: 20170910, end: 20170926
  2. STIVARGA [Suspect]
     Active Substance: REGORAFENIB
     Indication: COLORECTAL CANCER METASTATIC
     Dosage: DAILY DOSE 80 MG X 21 DAYS ON AND 7 DAYS OFF
     Dates: start: 20171016, end: 20171101

REACTIONS (5)
  - Throat tightness [None]
  - Musculoskeletal chest pain [None]
  - Deep vein thrombosis [None]
  - Diarrhoea [None]
  - Abdominal pain [Unknown]

NARRATIVE: CASE EVENT DATE: 201709
